FAERS Safety Report 5373502-1 (Version None)
Quarter: 2007Q2

REPORT INFORMATION
  Report Type: 
  Country: None (occurrence: None)
  Receive Date: 20070628
  Receipt Date: 20070620
  Transmission Date: 20071010
  Serious: Yes (Hospitalization)
  Sender: FDA-Public Use
  Company Number: A0644324B

PATIENT
  Age: 63 Year
  Sex: Female
  Weight: 88.6 kg

DRUGS (2)
  1. LAPATINIB [Suspect]
     Dosage: 1000MG PER DAY
     Route: 048
     Dates: start: 20061004
  2. CAPECITABINE [Suspect]
     Dosage: 1800MG PER DAY
     Route: 048
     Dates: start: 20061004

REACTIONS (2)
  - DYSPNOEA [None]
  - PNEUMONIA MYCOPLASMAL [None]
